FAERS Safety Report 17747995 (Version 2)
Quarter: 2020Q2

REPORT INFORMATION
  Report Type: Report from Study
  Country: US (occurrence: US)
  Receive Date: 20200505
  Receipt Date: 20200630
  Transmission Date: 20200714
  Serious: No
  Sender: FDA-Public Use
  Company Number: US-009507513-2005USA000447

PATIENT
  Age: 27 Year
  Sex: Female
  Weight: 66.67 kg

DRUGS (1)
  1. IMPLANON [Suspect]
     Active Substance: ETONOGESTREL
     Indication: CONTRACEPTION
     Dosage: 1 IMPLANT (68 MG)
     Route: 059
     Dates: start: 201705, end: 20200501

REACTIONS (1)
  - Hypoaesthesia [Recovered/Resolved]

NARRATIVE: CASE EVENT DATE: 2020
